FAERS Safety Report 16648391 (Version 4)
Quarter: 2020Q4

REPORT INFORMATION
  Report Type: Report from Study
  Country: US (occurrence: US)
  Receive Date: 20190730
  Receipt Date: 20201110
  Transmission Date: 20210113
  Serious: No
  Sender: FDA-Public Use
  Company Number: PHEH2019US031305

PATIENT
  Sex: Female

DRUGS (2)
  1. AFINITOR [Suspect]
     Active Substance: EVEROLIMUS
     Route: 048
  2. AFINITOR [Suspect]
     Active Substance: EVEROLIMUS
     Indication: PARTIAL SEIZURES
     Dosage: 8 MG, QD (ONCE DAILY)
     Route: 048
     Dates: start: 20190717

REACTIONS (5)
  - Insomnia [Unknown]
  - Product dose omission issue [Unknown]
  - Stomatitis [Unknown]
  - Vaginal haemorrhage [Unknown]
  - Bacterial vaginosis [Unknown]
